FAERS Safety Report 5223560-X (Version None)
Quarter: 2007Q1

REPORT INFORMATION
  Report Type: 
  Country: None (occurrence: None)
  Receive Date: 20070125
  Receipt Date: 20070105
  Transmission Date: 20070707
  Serious: Yes (Other)
  Sender: FDA-Public Use
  Company Number: THYM-11201

PATIENT
  Age: 50 Year
  Sex: Male

DRUGS (16)
  1. THYMOGLOBULIN [Suspect]
     Indication: KIDNEY TRANSPLANT REJECTION
     Dosage: 100 MG ONCE IV
     Route: 042
     Dates: start: 20070102, end: 20070102
  2. ACETAMINOPHEN [Concomitant]
  3. DIPHENHYDRAMINE HCL [Concomitant]
  4. SIMULECT [Concomitant]
  5. CELLCEPT [Concomitant]
  6. PREDNISONE [Concomitant]
  7. BELATACEPT [Concomitant]
  8. LEVAQUIN [Concomitant]
  9. CLOTRIMAZOLE [Concomitant]
  10. SEPTRA S.S. [Concomitant]
  11. VALCYTE [Concomitant]
  12. ALLOPURINOL SODIUM [Concomitant]
  13. DOCUSATE [Concomitant]
  14. VITAMIN D [Concomitant]
  15. MULTIVITAMIN D [Concomitant]
  16. PROTONIX [Concomitant]

REACTIONS (10)
  - ANTIBODY TEST POSITIVE [None]
  - BLOOD CREATININE INCREASED [None]
  - DYSPNOEA [None]
  - HYPOTENSION [None]
  - LEUKOPENIA [None]
  - PYREXIA [None]
  - RASH ERYTHEMATOUS [None]
  - THROMBOCYTOPENIA [None]
  - WHEEZING [None]
  - WHITE BLOOD CELL COUNT DECREASED [None]
